FAERS Safety Report 13003714 (Version 1)
Quarter: 2016Q4

REPORT INFORMATION
  Report Type: Spontaneous
  Country: US (occurrence: US)
  Receive Date: 20161206
  Receipt Date: 20161206
  Transmission Date: 20170207
  Serious: No
  Sender: FDA-Public Use
  Company Number: US-PFIZER INC-3231360

PATIENT
  Sex: Female

DRUGS (3)
  1. LIDOCAINE HCL [Suspect]
     Active Substance: LIDOCAINE HYDROCHLORIDE
     Indication: CYSTOSCOPY
     Dosage: ONCE
     Route: 024
  2. BUPIVACAINE HCL [Suspect]
     Active Substance: BUPIVACAINE HYDROCHLORIDE
     Indication: CYSTOSCOPY
     Dosage: ONCE
     Route: 024
  3. EPINEPHRINE. [Suspect]
     Active Substance: EPINEPHRINE
     Indication: CYSTOSCOPY
     Dosage: ONCE
     Route: 024

REACTIONS (3)
  - Exposure during pregnancy [Recovered/Resolved]
  - Drug ineffective [Recovered/Resolved]
  - Discomfort [Recovered/Resolved]
